FAERS Safety Report 20371348 (Version 1)
Quarter: 2022Q1

REPORT INFORMATION
  Report Type: Spontaneous
  Country: GB (occurrence: GB)
  Receive Date: 20220124
  Receipt Date: 20220124
  Transmission Date: 20220423
  Serious: Yes (Other)
  Sender: FDA-Public Use
  Company Number: None

PATIENT
  Age: 18 Year
  Sex: Female

DRUGS (1)
  1. TOFACITINIB [Suspect]
     Active Substance: TOFACITINIB
     Indication: Colitis ulcerative
     Dosage: 5MG BD
     Route: 048
     Dates: start: 20210315, end: 20211119

REACTIONS (2)
  - Pulmonary embolism [Recovered/Resolved]
  - Myocardial injury [Recovered/Resolved]

NARRATIVE: CASE EVENT DATE: 20211119
